FAERS Safety Report 17273102 (Version 1)
Quarter: 2020Q1

REPORT INFORMATION
  Report Type: Spontaneous
  Country: US (occurrence: US)
  Receive Date: 20191223
  Receipt Date: 20191223
  Transmission Date: 20200409
  Serious: Yes (Life-Threatening)
  Sender: FDA-Public Use
  Company Number: None

PATIENT
  Age: 54 Year
  Sex: Male
  Weight: 66 kg

DRUGS (1)
  1. NAPROXEN (NAPROXEN NA 220MG TAB) [Suspect]
     Active Substance: NAPROXEN
     Indication: PAIN
     Route: 048
     Dates: start: 20160407, end: 20160407

REACTIONS (7)
  - Hypotension [None]
  - Dizziness [None]
  - Rash [None]
  - Flushing [None]
  - Angioedema [None]
  - Anaphylactic reaction [None]
  - Urticaria [None]

NARRATIVE: CASE EVENT DATE: 20160407
